FAERS Safety Report 22589810 (Version 1)
Quarter: 2023Q2

REPORT INFORMATION
  Report Type: Spontaneous
  Country: RU (occurrence: RU)
  Receive Date: 20230612
  Receipt Date: 20230612
  Transmission Date: 20230722
  Serious: Yes (Other)
  Sender: FDA-Public Use
  Company Number: RU-002147023-NVSC2023RU132651

PATIENT
  Age: 3 Month
  Sex: Male

DRUGS (1)
  1. AMOXICILLIN\CLAVULANATE POTASSIUM [Suspect]
     Active Substance: AMOXICILLIN\CLAVULANATE POTASSIUM
     Indication: Product used for unknown indication
     Dosage: 312.5 MG (250 MG OF AMOXICILLIN TRIHYDRATE + 62.5 MG OF POTASSIUM CLAVULANATE)
     Route: 048

REACTIONS (2)
  - Loss of consciousness [Recovered/Resolved]
  - Vomiting [Recovered/Resolved]
